FAERS Safety Report 20382494 (Version 1)
Quarter: 2022Q1

REPORT INFORMATION
  Report Type: Spontaneous
  Country: US (occurrence: US)
  Receive Date: 20220127
  Receipt Date: 20220127
  Transmission Date: 20220423
  Serious: Yes (Hospitalization)
  Sender: FDA-Public Use
  Company Number: US-PIRAMAL PHARMA LIMITED-2021-PEL-000243

PATIENT

DRUGS (2)
  1. GABLOFEN [Suspect]
     Active Substance: BACLOFEN
     Indication: Product used for unknown indication
     Dosage: 276 MICROGRAM PER DAY
     Route: 037
  2. BACLOFEN [Concomitant]
     Active Substance: BACLOFEN
     Indication: Withdrawal syndrome
     Dosage: UNK
     Route: 048

REACTIONS (1)
  - Withdrawal syndrome [Recovered/Resolved]
